FAERS Safety Report 13394405 (Version 1)
Quarter: 2017Q2

REPORT INFORMATION
  Report Type: Spontaneous
  Country: IT (occurrence: IT)
  Receive Date: 20170402
  Receipt Date: 20170402
  Transmission Date: 20170830
  Serious: Yes (Other)
  Sender: FDA-Public Use
  Company Number: IT-ROCHE-1900022

PATIENT
  Age: 59 Year
  Sex: Female

DRUGS (4)
  1. PACLITAXEL. [Concomitant]
     Active Substance: PACLITAXEL
     Indication: METAPLASTIC BREAST CARCINOMA
     Route: 042
     Dates: start: 20160901, end: 20170126
  2. AVASTIN [Suspect]
     Active Substance: BEVACIZUMAB
     Indication: METAPLASTIC BREAST CARCINOMA
     Route: 042
     Dates: start: 20160901, end: 20170112
  3. FULVESTRANT [Concomitant]
     Active Substance: FULVESTRANT
     Indication: BREAST CANCER
     Route: 065
     Dates: start: 20150805
  4. XGEVA [Suspect]
     Active Substance: DENOSUMAB
     Indication: METAPLASTIC BREAST CARCINOMA
     Route: 058
     Dates: start: 20151120, end: 20160922

REACTIONS (2)
  - Osteonecrosis of jaw [Not Recovered/Not Resolved]
  - Medical device pain [Unknown]

NARRATIVE: CASE EVENT DATE: 20161207
